FAERS Safety Report 17316714 (Version 3)
Quarter: 2025Q2

REPORT INFORMATION
  Report Type: Spontaneous
  Country: DE (occurrence: DE)
  Receive Date: 20200124
  Receipt Date: 20250623
  Transmission Date: 20250716
  Serious: Yes (Death, Other)
  Sender: NOVARTIS
  Company Number: None

PATIENT
  Age: 18 Year
  Sex: Female

DRUGS (11)
  1. MYCOPHENOLATE MOFETIL [Suspect]
     Active Substance: MYCOPHENOLATE MOFETIL
     Indication: Stem cell transplant
     Route: 065
  2. MYCOPHENOLATE MOFETIL [Suspect]
     Active Substance: MYCOPHENOLATE MOFETIL
     Indication: Immunosuppressant drug therapy
  3. CYCLOSPORINE [Suspect]
     Active Substance: CYCLOSPORINE
     Indication: Immunosuppressant drug therapy
     Route: 065
  4. CYCLOSPORINE [Suspect]
     Active Substance: CYCLOSPORINE
     Indication: Stem cell transplant
  5. FLUDARABINE PHOSPHATE [Suspect]
     Active Substance: FLUDARABINE PHOSPHATE
     Indication: Allogenic stem cell transplantation
     Dosage: 40 MG/M2, QID (4 DOSAGES 40 MG/M2)
     Route: 065
  6. THYMOCYTE IMMUNE GLOBULIN NOS [Suspect]
     Active Substance: THYMOCYTE IMMUNE GLOBULIN NOS
     Indication: Allogenic stem cell transplantation
     Dosage: 15 MG/KG, TID (3 DOSAGES 15 MG/KG)
     Route: 065
  7. THIOTEPA [Suspect]
     Active Substance: THIOTEPA
     Indication: Stem cell transplant
     Dosage: 5 MG/KG, BID (2 DOSAGES 5 MG/KG)
     Route: 065
  8. THIOTEPA [Suspect]
     Active Substance: THIOTEPA
     Indication: Allogenic stem cell transplantation
  9. TREOSULFAN [Suspect]
     Active Substance: TREOSULFAN
     Indication: Stem cell transplant
     Dosage: 3 DOSAGES 14 MG/M2
     Route: 065
  10. TREOSULFAN [Suspect]
     Active Substance: TREOSULFAN
     Indication: Allogenic stem cell transplantation
  11. CIDOFOVIR [Concomitant]
     Active Substance: CIDOFOVIR
     Indication: Antiviral treatment
     Route: 065

REACTIONS (10)
  - Acute graft versus host disease in skin [Fatal]
  - Acute graft versus host disease in intestine [Fatal]
  - Multiple organ dysfunction syndrome [Fatal]
  - Cytomegalovirus infection reactivation [Recovered/Resolved]
  - Encephalitis viral [Unknown]
  - Diarrhoea [Unknown]
  - Adenovirus infection [Recovered/Resolved]
  - Human herpesvirus 6 infection [Unknown]
  - Abnormal behaviour [Unknown]
  - Product use in unapproved indication [Unknown]
